FAERS Safety Report 8326259-6 (Version None)
Quarter: 2012Q2

REPORT INFORMATION
  Report Type: 
  Country: None (occurrence: None)
  Receive Date: 20120501
  Receipt Date: 20090821
  Transmission Date: 20120825
  Serious: No
  Sender: FDA-Public Use
  Company Number: 2009BI026833

PATIENT
  Sex: Female

DRUGS (1)
  1. TYSABRI [Suspect]
     Indication: MULTIPLE SCLEROSIS
     Route: 042
     Dates: start: 20080320

REACTIONS (5)
  - PRURITUS ALLERGIC [None]
  - ABDOMINAL DISCOMFORT [None]
  - HYPERSENSITIVITY [None]
  - CHEST PAIN [None]
  - NAUSEA [None]
